FAERS Safety Report 8551909-9 (Version None)
Quarter: 2012Q3

REPORT INFORMATION
  Report Type: 
  Country: None (occurrence: None)
  Receive Date: 20120730
  Receipt Date: 20120724
  Transmission Date: 20120928
  Serious: Yes (Other)
  Sender: FDA-Public Use
  Company Number: JP-B.I. PHARMACEUTICALS,INC./RIDGEFIELD-2012-BP-16518NB

PATIENT
  Age: 86 Year
  Sex: Female

DRUGS (2)
  1. TRAZENTA [Suspect]
     Indication: TYPE 2 DIABETES MELLITUS
     Dosage: 5 MG
     Route: 048
     Dates: start: 20120316, end: 20120509
  2. MICARDIS [Concomitant]
     Indication: HYPERTENSION
     Dosage: 20 MG
     Route: 048

REACTIONS (1)
  - PEMPHIGOID [None]
